FAERS Safety Report 10871991 (Version 1)
Quarter: 2015Q1

REPORT INFORMATION
  Report Type: Spontaneous
  Country: US (occurrence: None)
  Receive Date: 20150223
  Receipt Date: 20150223
  Transmission Date: 20150721
  Serious: No
  Sender: FDA-Public Use
  Company Number: None

PATIENT
  Age: 62 Year
  Sex: Female
  Weight: 56.7 kg

DRUGS (4)
  1. ALLOPURINOL 300MG COMMON BRANDS [Suspect]
     Active Substance: ALLOPURINOL
     Indication: GOUT
     Dosage: 1 PILL ONCE DAILY TAKEN BY MOUTH
     Route: 048
     Dates: start: 20150210, end: 20150221
  2. CLONAZEPAM. [Concomitant]
     Active Substance: CLONAZEPAM
  3. METHIMAZOLE. [Concomitant]
     Active Substance: METHIMAZOLE
  4. ALEVE [Concomitant]
     Active Substance: NAPROXEN SODIUM

REACTIONS (5)
  - Pain [None]
  - Abasia [None]
  - Fatigue [None]
  - Muscle spasms [None]
  - Dysuria [None]

NARRATIVE: CASE EVENT DATE: 20150221
